FAERS Safety Report 12321280 (Version 4)
Quarter: 2017Q2

REPORT INFORMATION
  Report Type: Report from Study
  Country: FR (occurrence: FR)
  Receive Date: 20160502
  Receipt Date: 20170425
  Transmission Date: 20170830
  Serious: Yes (Hospitalization)
  Sender: FDA-Public Use
  Company Number: FR-ROCHE-1357261

PATIENT
  Age: 52 Year
  Sex: Female
  Weight: 73 kg

DRUGS (27)
  1. POLARAMINE [Concomitant]
     Active Substance: DEXCHLORPHENIRAMINE MALEATE
     Dosage: SINGLE DOSE
     Route: 042
     Dates: start: 20140224, end: 20140224
  2. POLARAMINE [Concomitant]
     Active Substance: DEXCHLORPHENIRAMINE MALEATE
     Dosage: SINGLE DOSE
     Route: 042
     Dates: start: 20140306, end: 20140306
  3. OBINUTUZUMAB [Suspect]
     Active Substance: OBINUTUZUMAB
     Indication: CHRONIC LYMPHOCYTIC LEUKAEMIA REFRACTORY
     Dosage: FREQUENCY PER PROTOCOL: 1000 MG IV INFUSION ON DAYS 1/2 (DOSE SPLIT OVER 2 CONSECUTIVE DAYS; 100 MG
     Route: 042
     Dates: start: 20140224, end: 20140225
  4. SOLU-MEDROL [Concomitant]
     Active Substance: METHYLPREDNISOLONE SODIUM SUCCINATE
     Indication: PROPHYLAXIS
     Route: 042
     Dates: start: 20140306, end: 20140306
  5. SOLU-MEDROL [Concomitant]
     Active Substance: METHYLPREDNISOLONE SODIUM SUCCINATE
     Route: 042
     Dates: start: 20140402, end: 20140723
  6. POLARAMINE [Concomitant]
     Active Substance: DEXCHLORPHENIRAMINE MALEATE
     Dosage: SINGLE DOSE
     Route: 042
     Dates: start: 20140320, end: 20140320
  7. FASTURTEC [Concomitant]
     Active Substance: RASBURICASE
     Indication: PROPHYLAXIS
     Dosage: SINGLE DOSE
     Route: 042
     Dates: start: 20140224, end: 20140224
  8. BACTRIM [Concomitant]
     Active Substance: SULFAMETHOXAZOLE\TRIMETHOPRIM
     Indication: PROPHYLAXIS
     Route: 048
     Dates: start: 20140307, end: 20140820
  9. OBINUTUZUMAB [Suspect]
     Active Substance: OBINUTUZUMAB
     Dosage: FREQUENCY PER PROTOCOL: 1000 MG IV INFUSION ON DAYS 1/2 (DOSE SPLIT OVER 2 CONSECUTIVE DAYS; 100 MG
     Route: 042
     Dates: start: 20140306, end: 20140306
  10. DUPHALAC (FRANCE) [Concomitant]
     Active Substance: LACTULOSE
     Route: 065
     Dates: start: 20140306, end: 20140307
  11. POLARAMINE [Concomitant]
     Active Substance: DEXCHLORPHENIRAMINE MALEATE
     Indication: PROPHYLAXIS
     Route: 042
     Dates: start: 20140402, end: 20140723
  12. ZYLORIC [Concomitant]
     Active Substance: ALLOPURINOL
     Indication: PROPHYLAXIS
     Route: 042
     Dates: start: 20140312, end: 20140312
  13. LEDERFOLINE [Concomitant]
     Active Substance: LEUCOVORIN CALCIUM
     Indication: PROPHYLAXIS
     Route: 048
     Dates: start: 20140307, end: 20140820
  14. ORACILLINE [Concomitant]
     Active Substance: PENICILLIN V
     Indication: PROPHYLAXIS
     Route: 048
     Dates: start: 20140319, end: 20140624
  15. ZOVIRAX [Concomitant]
     Active Substance: ACYCLOVIR
     Route: 048
     Dates: start: 2014
  16. PARACETAMOL [Concomitant]
     Active Substance: ACETAMINOPHEN
     Dosage: SINGLE DOSE
     Route: 042
     Dates: start: 20140306, end: 20140306
  17. SOLU-MEDROL [Concomitant]
     Active Substance: METHYLPREDNISOLONE SODIUM SUCCINATE
     Dosage: SINGLE DOSE
     Route: 042
     Dates: start: 20140320, end: 20140320
  18. PERFALGAN [Concomitant]
     Active Substance: ACETAMINOPHEN
     Route: 042
     Dates: start: 20140320, end: 20140320
  19. PREDNISONE. [Concomitant]
     Active Substance: PREDNISONE
     Route: 065
     Dates: start: 20140224, end: 20140224
  20. ZELITREX [Concomitant]
     Active Substance: VALACYCLOVIR HYDROCHLORIDE
     Indication: PROPHYLAXIS
     Route: 048
     Dates: start: 20140306, end: 20140820
  21. PERFALGAN [Concomitant]
     Active Substance: ACETAMINOPHEN
     Indication: PROPHYLAXIS
     Route: 042
     Dates: start: 20140402, end: 20140723
  22. FRAKIDEX [Concomitant]
     Dosage: 1 DROP
     Route: 050
     Dates: start: 201504, end: 201504
  23. SOLU-MEDROL [Concomitant]
     Active Substance: METHYLPREDNISOLONE SODIUM SUCCINATE
     Dosage: SINGLE DOSE
     Route: 042
     Dates: start: 20140224, end: 20140224
  24. ALLOPURINOL. [Concomitant]
     Active Substance: ALLOPURINOL
     Indication: PROPHYLAXIS
     Route: 042
     Dates: start: 20140306, end: 20140306
  25. INEXIUM [Concomitant]
     Active Substance: ESOMEPRAZOLE
     Indication: PROPHYLAXIS
     Route: 048
     Dates: start: 20140311
  26. PARACETAMOL [Concomitant]
     Active Substance: ACETAMINOPHEN
     Indication: HEPATOCELLULAR INJURY
     Route: 048
     Dates: start: 20140225, end: 20140228
  27. PARACETAMOL [Concomitant]
     Active Substance: ACETAMINOPHEN
     Dosage: SINGLE DOSE
     Route: 042
     Dates: start: 20140224, end: 20140224

REACTIONS (2)
  - Hepatocellular injury [Recovered/Resolved]
  - Pyrexia [Recovered/Resolved]

NARRATIVE: CASE EVENT DATE: 20140225
